FAERS Safety Report 8026884-6 (Version None)
Quarter: 2012Q1

REPORT INFORMATION
  Report Type: 
  Country: None (occurrence: None)
  Receive Date: 20120106
  Receipt Date: 20120103
  Transmission Date: 20120608
  Serious: No
  Sender: FDA-Public Use
  Company Number: US-PFIZER INC-2006056075

PATIENT
  Sex: Female
  Weight: 56.25 kg

DRUGS (3)
  1. NEURONTIN [Suspect]
     Indication: TRIGEMINAL NEURALGIA
     Dosage: 300 MG, 3X/DAY
     Route: 065
  2. LYRICA [Suspect]
     Indication: POST HERPETIC NEURALGIA
     Dosage: 50 MG, 3X/DAY
     Route: 065
     Dates: start: 20060419
  3. THYROID TAB [Concomitant]
     Route: 065

REACTIONS (3)
  - DYSPHAGIA [None]
  - DRUG INEFFECTIVE [None]
  - POST HERPETIC NEURALGIA [None]
